FAERS Safety Report 9118935 (Version 1)
Quarter: 2013Q1

REPORT INFORMATION
  Report Type: Spontaneous
  Country: US (occurrence: None)
  Receive Date: 20130221
  Receipt Date: 20130221
  Transmission Date: 20140127
  Serious: Yes (Hospitalization, Other)
  Sender: FDA-Public Use
  Company Number: None

PATIENT
  Age: 73 Year
  Sex: Male
  Weight: 89.81 kg

DRUGS (1)
  1. OPANA ER [Suspect]
     Dosage: TWICE DAILY ORAL
     Route: 048

REACTIONS (7)
  - Dyskinesia [None]
  - Hallucination [None]
  - Fall [None]
  - Insomnia [None]
  - Weight decreased [None]
  - Pain [None]
  - Suicidal ideation [None]
